FAERS Safety Report 7334795-4 (Version None)
Quarter: 2011Q1

REPORT INFORMATION
  Report Type: 
  Country: None (occurrence: None)
  Receive Date: 20110222
  Receipt Date: 20110214
  Transmission Date: 20110831
  Serious: Yes (Life-Threatening, Hospitalization)
  Sender: FDA-Public Use
  Company Number: 2010SP014655

PATIENT
  Age: 68 Year
  Sex: Female
  Weight: 57 kg

DRUGS (2)
  1. URSO 250 [Concomitant]
  2. PEGINTERFERON ALFA-2B [Suspect]
     Indication: HEPATITIS C
     Dosage: 0.5 MCG/KG, QW, SC
     Route: 058
     Dates: start: 20090303, end: 20100301

REACTIONS (10)
  - DECREASED APPETITE [None]
  - PANCREATITIS [None]
  - PLEURAL EFFUSION [None]
  - ABDOMINAL DISTENSION [None]
  - DUODENAL STENOSIS [None]
  - ASCITES [None]
  - ABDOMINAL ADHESIONS [None]
  - JAUNDICE [None]
  - METASTASES TO LUNG [None]
  - PANCREATIC CARCINOMA METASTATIC [None]
